FAERS Safety Report 7794302-9 (Version None)
Quarter: 2011Q4

REPORT INFORMATION
  Report Type: 
  Country: None (occurrence: None)
  Receive Date: 20111004
  Receipt Date: 20110922
  Transmission Date: 20120403
  Serious: Yes (Hospitalization, Other)
  Sender: FDA-Public Use
  Company Number: US-BAYER-2011-033749

PATIENT
  Age: 21 Year
  Sex: Female
  Weight: 86.168 kg

DRUGS (3)
  1. YASMIN [Suspect]
     Indication: CONTRACEPTION
     Dosage: UNK
     Dates: start: 20050801, end: 20080701
  2. DROSPIRENONE AND ETHINYL ESTRADIOL [Suspect]
     Indication: CONTRACEPTION
     Dosage: UNK
     Dates: start: 20080801, end: 20100820
  3. PERCOCET-5 [Concomitant]
     Dosage: UNK
     Route: 048
     Dates: start: 20090428

REACTIONS (7)
  - PAIN [None]
  - BILIARY COLIC [None]
  - GALLBLADDER DISORDER [None]
  - ABDOMINAL PAIN [None]
  - PROCEDURAL PAIN [None]
  - CHOLELITHIASIS [None]
  - EMOTIONAL DISTRESS [None]
